FAERS Safety Report 4818912-3 (Version None)
Quarter: 2005Q4

REPORT INFORMATION
  Report Type: 
  Country: None (occurrence: None)
  Receive Date: 20051101
  Receipt Date: 20051020
  Transmission Date: 20060501
  Serious: Yes (Hospitalization)
  Sender: FDA-Public Use
  Company Number: 2004108386

PATIENT
  Age: 61 Year
  Sex: Female

DRUGS (3)
  1. NEURONTIN [Suspect]
     Indication: MYALGIA
     Dosage: 200 MG, ORAL
     Route: 048
     Dates: start: 20041001, end: 20041012
  2. ZOLPIDEM TARTRATE [Concomitant]
  3. CLONAZEPAM [Concomitant]

REACTIONS (15)
  - AGITATION [None]
  - AMNESIA [None]
  - CONVULSION [None]
  - HEADACHE [None]
  - INSOMNIA [None]
  - IRRITABILITY [None]
  - MENTAL DISORDER [None]
  - MONOPARESIS [None]
  - NAUSEA [None]
  - NERVOUSNESS [None]
  - OSTEOARTHRITIS [None]
  - SYNCOPE [None]
  - TREMOR [None]
  - URINARY INCONTINENCE [None]
  - URINARY TRACT DISORDER [None]
